FAERS Safety Report 6668804-2 (Version None)
Quarter: 2010Q2

REPORT INFORMATION
  Report Type: 
  Country: None (occurrence: None)
  Receive Date: 20100406
  Receipt Date: 20100401
  Transmission Date: 20101027
  Serious: Yes (Life-Threatening)
  Sender: FDA-Public Use
  Company Number: JP-ASTRAZENECA-2010SE14647

PATIENT
  Age: 76 Year
  Sex: Male

DRUGS (7)
  1. MEROPEN [Suspect]
     Dates: start: 20100305, end: 20100308
  2. TARGOCID [Suspect]
     Dates: start: 20100307, end: 20100308
  3. TARGOCID [Suspect]
     Dates: start: 20100305, end: 20100306
  4. TARGOCID [Suspect]
     Dates: start: 20100303, end: 20100304
  5. UNASYN [Concomitant]
     Dates: start: 20100217, end: 20100220
  6. CEFTAZIDIME [Concomitant]
     Dates: start: 20100217, end: 20100226
  7. FIRSTCIN [Concomitant]
     Dates: start: 20100227, end: 20100303

REACTIONS (2)
  - ANURIA [None]
  - RENAL FAILURE ACUTE [None]
